FAERS Safety Report 10874776 (Version 6)
Quarter: 2015Q2

REPORT INFORMATION
  Report Type: Spontaneous
  Country: US (occurrence: US)
  Receive Date: 20150227
  Receipt Date: 20150429
  Transmission Date: 20150821
  Serious: Yes (Death, Hospitalization)
  Sender: FDA-Public Use
  Company Number: US-UNITED THERAPEUTICS-UNT-2015-001557

PATIENT
  Age: 62 Year
  Sex: Female
  Weight: 49.43 kg

DRUGS (8)
  1. ASPIRIN                            /00002701/ [Concomitant]
     Active Substance: ASPIRIN
     Indication: PRODUCT USED FOR UNKNOWN INDICATION
  2. REMODULIN [Suspect]
     Active Substance: TREPROSTINIL
     Dosage: 0.028 ?G/KG, CONTINUING
     Route: 058
  3. LETAIRIS [Concomitant]
     Active Substance: AMBRISENTAN
     Indication: PRODUCT USED FOR UNKNOWN INDICATION
  4. REMODULIN [Suspect]
     Active Substance: TREPROSTINIL
     Indication: PULMONARY HYPERTENSION
     Dosage: 0.022 ?G/KG, CONTINUING
     Route: 058
     Dates: start: 20141222
  5. REMODULIN [Suspect]
     Active Substance: TREPROSTINIL
     Dosage: 0.024 ?G/KG, CONTINUING
     Route: 058
  6. REMODULIN [Suspect]
     Active Substance: TREPROSTINIL
     Dosage: 0.028 ?G/KG, CONTINUING
     Route: 058
     Dates: start: 20150220
  7. REMODULIN [Suspect]
     Active Substance: TREPROSTINIL
     Dosage: 0.019 ?G/KG, CONTINUING
     Route: 058
  8. REVATIO [Concomitant]
     Active Substance: SILDENAFIL CITRATE
     Indication: PRODUCT USED FOR UNKNOWN INDICATION

REACTIONS (11)
  - Diarrhoea [Unknown]
  - Drug dose omission [Unknown]
  - Device dislocation [Unknown]
  - Cardiac failure [Unknown]
  - Infusion site oedema [Unknown]
  - Infusion site erythema [Unknown]
  - Fluid retention [Unknown]
  - Infusion site pain [Unknown]
  - Dyspnoea [Unknown]
  - Infusion site infection [Unknown]
  - Death [Fatal]

NARRATIVE: CASE EVENT DATE: 201502
